FAERS Safety Report 6548423-9 (Version None)
Quarter: 2010Q1

REPORT INFORMATION
  Report Type: 
  Country: None (occurrence: None)
  Receive Date: 20100124
  Receipt Date: 20090622
  Transmission Date: 20100710
  Serious: No
  Sender: FDA-Public Use
  Company Number: US-ALLERGAN-0908777US

PATIENT
  Sex: Female

DRUGS (5)
  1. RESTASIS [Suspect]
     Indication: DRY EYE
     Dosage: UNK, UNKNOWN
     Route: 047
  2. LISINOPRIL [Concomitant]
  3. LIPITOR [Concomitant]
  4. NORVASC [Concomitant]
  5. DARVOCET [Concomitant]

REACTIONS (4)
  - EYE IRRITATION [None]
  - HEADACHE [None]
  - LACRIMATION INCREASED [None]
  - OCULAR HYPERAEMIA [None]
